FAERS Safety Report 5014209-X (Version None)
Quarter: 2006Q2

REPORT INFORMATION
  Report Type: 
  Country: None (occurrence: None)
  Receive Date: 20060414
  Receipt Date: 20060215
  Transmission Date: 20061013
  Serious: No
  Sender: FDA-Public Use
  Company Number: 2006SP000793

PATIENT
  Age: 41 Year
  Sex: Female
  Weight: 55.3388 kg

DRUGS (3)
  1. LUNESTA [Suspect]
     Indication: INSOMNIA
     Dosage: SEE IMAGE
     Route: 048
     Dates: start: 20060101, end: 20060101
  2. LUNESTA [Suspect]
     Indication: INSOMNIA
     Dosage: SEE IMAGE
     Route: 048
     Dates: start: 20060201, end: 20060201
  3. PERCOCET [Concomitant]

REACTIONS (4)
  - DYSGEUSIA [None]
  - HEADACHE [None]
  - MALAISE [None]
  - MIDDLE INSOMNIA [None]
